FAERS Safety Report 10913210 (Version 2)
Quarter: 2015Q1

REPORT INFORMATION
  Report Type: Spontaneous
  Country: US (occurrence: US)
  Receive Date: 20150313
  Receipt Date: 20150323
  Transmission Date: 20150721
  Serious: No
  Sender: FDA-Public Use
  Company Number: US-PFIZER INC-2015087264

PATIENT
  Sex: Female

DRUGS (1)
  1. LYRICA [Suspect]
     Active Substance: PREGABALIN
     Dosage: UNK

REACTIONS (5)
  - Dizziness [Unknown]
  - Visual impairment [Unknown]
  - Drug intolerance [Unknown]
  - Activities of daily living impaired [Unknown]
  - Disturbance in attention [Unknown]
